FAERS Safety Report 21708737 (Version 2)
Quarter: 2022Q4

REPORT INFORMATION
  Report Type: Spontaneous
  Country: GB (occurrence: GB)
  Receive Date: 20221210
  Receipt Date: 20221216
  Transmission Date: 20230112
  Serious: Yes (Other)
  Sender: FDA-Public Use
  Company Number: GB-JNJFOC-20220845368

PATIENT
  Age: 40 Year
  Sex: Female
  Weight: 91 kg

DRUGS (66)
  1. BORTEZOMIB [Suspect]
     Active Substance: BORTEZOMIB
     Indication: Product used for unknown indication
     Dosage: UNK, CYCLE 1
     Route: 065
     Dates: start: 20200522
  2. BORTEZOMIB [Suspect]
     Active Substance: BORTEZOMIB
     Indication: Plasma cell myeloma
     Dosage: UNK, CYCLE 2
     Route: 065
     Dates: start: 20200619
  3. BORTEZOMIB [Suspect]
     Active Substance: BORTEZOMIB
     Dosage: UNK, CYCLE 3
     Route: 065
     Dates: start: 20200717
  4. BORTEZOMIB [Suspect]
     Active Substance: BORTEZOMIB
     Dosage: UNK, CYCLE 4
     Route: 065
     Dates: start: 20200819
  5. BORTEZOMIB [Suspect]
     Active Substance: BORTEZOMIB
     Dosage: UNK, CYCLE 5
     Route: 065
     Dates: start: 20200911
  6. BORTEZOMIB [Suspect]
     Active Substance: BORTEZOMIB
     Dosage: UNK, CYCLE 6
     Route: 065
     Dates: start: 20201230
  7. BORTEZOMIB [Suspect]
     Active Substance: BORTEZOMIB
     Dosage: UNK, CYCLE 7
     Route: 065
     Dates: start: 20210127
  8. BORTEZOMIB [Suspect]
     Active Substance: BORTEZOMIB
     Dosage: UNK, CYCLE 8
     Route: 065
     Dates: start: 20210224
  9. BORTEZOMIB [Suspect]
     Active Substance: BORTEZOMIB
     Dosage: UNK, CYCLE 9
     Route: 065
     Dates: start: 20210324
  10. BORTEZOMIB [Suspect]
     Active Substance: BORTEZOMIB
     Dosage: UNK, CYCLE 10
     Route: 065
     Dates: start: 20210421
  11. BORTEZOMIB [Suspect]
     Active Substance: BORTEZOMIB
     Dosage: UNK, CYCLE 11
     Route: 065
     Dates: start: 20210520
  12. BORTEZOMIB [Suspect]
     Active Substance: BORTEZOMIB
     Dosage: UNK, CYCLE 12
     Route: 065
     Dates: start: 20210616
  13. BORTEZOMIB [Suspect]
     Active Substance: BORTEZOMIB
     Dosage: UNK, CYCLE 13
     Route: 065
     Dates: start: 20210923
  14. BORTEZOMIB [Suspect]
     Active Substance: BORTEZOMIB
     Dosage: UNK, CYCLE 14
     Route: 065
     Dates: start: 20211021
  15. BORTEZOMIB [Suspect]
     Active Substance: BORTEZOMIB
     Dosage: UNK, CYCLE 15
     Route: 065
     Dates: start: 20211124
  16. BORTEZOMIB [Suspect]
     Active Substance: BORTEZOMIB
     Dosage: UNK, CYCLE 16
     Route: 065
     Dates: start: 20211222
  17. DEXAMETHASONE [Suspect]
     Active Substance: DEXAMETHASONE
     Indication: Product used for unknown indication
     Dosage: UNK, CYCLE 1
     Route: 065
     Dates: start: 20200522
  18. DEXAMETHASONE [Suspect]
     Active Substance: DEXAMETHASONE
     Dosage: UNK, CYCLE 2
     Route: 065
     Dates: start: 20200619
  19. DEXAMETHASONE [Suspect]
     Active Substance: DEXAMETHASONE
     Dosage: UNK, CYCLE 3
     Route: 065
     Dates: start: 20200717
  20. DEXAMETHASONE [Suspect]
     Active Substance: DEXAMETHASONE
     Dosage: UNK, CYCLE 4
     Route: 065
     Dates: start: 20200819
  21. DEXAMETHASONE [Suspect]
     Active Substance: DEXAMETHASONE
     Dosage: UNK, CYCLE 5
     Route: 065
     Dates: start: 20200911
  22. DEXAMETHASONE [Suspect]
     Active Substance: DEXAMETHASONE
     Dosage: UNK CYCLE 6
     Route: 065
     Dates: start: 20201230
  23. DEXAMETHASONE [Suspect]
     Active Substance: DEXAMETHASONE
     Dosage: UNK, CYCLE 7
     Route: 065
     Dates: start: 20210127
  24. DEXAMETHASONE [Suspect]
     Active Substance: DEXAMETHASONE
     Dosage: UNK, CYCLE 8
     Route: 065
     Dates: start: 20210224
  25. DEXAMETHASONE [Suspect]
     Active Substance: DEXAMETHASONE
     Dosage: UNK, CYCLE 9
     Route: 065
     Dates: start: 20210324
  26. DEXAMETHASONE [Suspect]
     Active Substance: DEXAMETHASONE
     Dosage: UNK, CYCLE 10
     Route: 065
     Dates: start: 20210421
  27. DEXAMETHASONE [Suspect]
     Active Substance: DEXAMETHASONE
     Dosage: UNK, CYCLE 11
     Route: 065
     Dates: start: 20210520
  28. DEXAMETHASONE [Suspect]
     Active Substance: DEXAMETHASONE
     Dosage: UNK, CYCLE 12
     Route: 065
     Dates: start: 20210616
  29. DEXAMETHASONE [Suspect]
     Active Substance: DEXAMETHASONE
     Dosage: UNK, CYCLE 13
     Route: 065
     Dates: start: 20210923
  30. DEXAMETHASONE [Suspect]
     Active Substance: DEXAMETHASONE
     Dosage: UNK, CYCLE 14
     Route: 065
     Dates: start: 20211021
  31. DEXAMETHASONE [Suspect]
     Active Substance: DEXAMETHASONE
     Dosage: UNK, CYCLE 15
     Route: 065
     Dates: start: 20211124
  32. DEXAMETHASONE [Suspect]
     Active Substance: DEXAMETHASONE
     Dosage: UNK, CYCLE 16
     Route: 065
     Dates: start: 20211222
  33. LENOGRASTIM [Suspect]
     Active Substance: LENOGRASTIM
     Indication: Neutropenia
     Dosage: UNK
     Route: 065
     Dates: start: 20200819, end: 20210217
  34. LENOGRASTIM [Suspect]
     Active Substance: LENOGRASTIM
     Indication: Peripheral sensory neuropathy
     Dosage: UNK
     Route: 065
  35. PANOBINOSTAT [Suspect]
     Active Substance: PANOBINOSTAT
     Indication: Plasma cell myeloma
     Dosage: UNK, CYCLE 1
     Route: 065
     Dates: start: 20200522
  36. PANOBINOSTAT [Suspect]
     Active Substance: PANOBINOSTAT
     Dosage: UNK, CYCLE 2
     Route: 065
     Dates: start: 20200619
  37. PANOBINOSTAT [Suspect]
     Active Substance: PANOBINOSTAT
     Dosage: UNK, CYCLE 3
     Route: 065
     Dates: start: 20200717
  38. PANOBINOSTAT [Suspect]
     Active Substance: PANOBINOSTAT
     Dosage: UNK, CYCLE 4
     Route: 065
     Dates: start: 20200819
  39. PANOBINOSTAT [Suspect]
     Active Substance: PANOBINOSTAT
     Dosage: UNK, CYCLE 5
     Route: 065
     Dates: start: 20200911
  40. PANOBINOSTAT [Suspect]
     Active Substance: PANOBINOSTAT
     Dosage: UNK, CYCLE 6
     Route: 065
     Dates: start: 20201230
  41. PANOBINOSTAT [Suspect]
     Active Substance: PANOBINOSTAT
     Dosage: UNK, CYCLE 7
     Route: 065
     Dates: start: 20210127
  42. PANOBINOSTAT [Suspect]
     Active Substance: PANOBINOSTAT
     Dosage: UNK, CYCLE 8
     Route: 065
     Dates: start: 20210224
  43. PANOBINOSTAT [Suspect]
     Active Substance: PANOBINOSTAT
     Dosage: UNK, CYCLE 9
     Route: 065
     Dates: start: 20210324
  44. PANOBINOSTAT [Suspect]
     Active Substance: PANOBINOSTAT
     Dosage: UNK, CYCLE 10
     Route: 065
     Dates: start: 20210421
  45. PANOBINOSTAT [Suspect]
     Active Substance: PANOBINOSTAT
     Dosage: UNK, CYCLE 11
     Route: 065
     Dates: start: 20210520
  46. PANOBINOSTAT [Suspect]
     Active Substance: PANOBINOSTAT
     Dosage: UNK, CYCLE 12
     Route: 065
     Dates: start: 20210616
  47. PANOBINOSTAT [Suspect]
     Active Substance: PANOBINOSTAT
     Dosage: UNK, CYCLE 13
     Route: 065
     Dates: start: 20210923
  48. PANOBINOSTAT [Suspect]
     Active Substance: PANOBINOSTAT
     Dosage: UNK, CYCLE 14
     Route: 065
     Dates: start: 20211021
  49. PANOBINOSTAT [Suspect]
     Active Substance: PANOBINOSTAT
     Dosage: UNK, CYCLE 15
     Route: 065
     Dates: start: 20211124
  50. PANOBINOSTAT [Suspect]
     Active Substance: PANOBINOSTAT
     Dosage: UNK, CYCLE 16
     Route: 065
     Dates: start: 20211222
  51. VELCADE [Suspect]
     Active Substance: BORTEZOMIB
     Indication: Plasma cell myeloma
     Dosage: UNK, CYCLE 1
     Route: 065
     Dates: start: 20200522
  52. VELCADE [Suspect]
     Active Substance: BORTEZOMIB
     Dosage: UNK, CYCLE 2
     Route: 065
     Dates: start: 20200619
  53. VELCADE [Suspect]
     Active Substance: BORTEZOMIB
     Dosage: UNK, CYCLE 3
     Route: 065
     Dates: start: 20200717
  54. VELCADE [Suspect]
     Active Substance: BORTEZOMIB
     Dosage: UNK, CYCLE 4
     Route: 065
     Dates: start: 20200819
  55. VELCADE [Suspect]
     Active Substance: BORTEZOMIB
     Dosage: UNK, CYCLE 5
     Route: 065
     Dates: start: 20200911
  56. VELCADE [Suspect]
     Active Substance: BORTEZOMIB
     Dosage: UNK, CYCLE 6
     Route: 065
     Dates: start: 20201230
  57. VELCADE [Suspect]
     Active Substance: BORTEZOMIB
     Dosage: UNK, CYCLE 7
     Route: 065
     Dates: start: 20210127
  58. VELCADE [Suspect]
     Active Substance: BORTEZOMIB
     Dosage: UNK, CYCLE 8
     Route: 065
     Dates: start: 20210224
  59. VELCADE [Suspect]
     Active Substance: BORTEZOMIB
     Dosage: UNK, CYCLE 9
     Route: 065
     Dates: start: 20210324
  60. VELCADE [Suspect]
     Active Substance: BORTEZOMIB
     Dosage: UNK, CYCLE 10
     Route: 065
     Dates: start: 20210421
  61. VELCADE [Suspect]
     Active Substance: BORTEZOMIB
     Dosage: UNK, CYCLE 11
     Route: 065
     Dates: start: 20210520
  62. VELCADE [Suspect]
     Active Substance: BORTEZOMIB
     Dosage: UNK, CYCLE 12
     Route: 065
     Dates: start: 20210616
  63. VELCADE [Suspect]
     Active Substance: BORTEZOMIB
     Dosage: UNK, CYCLE 13
     Route: 065
     Dates: start: 20210923
  64. VELCADE [Suspect]
     Active Substance: BORTEZOMIB
     Dosage: UNK, CYCLE 14
     Route: 065
     Dates: start: 20211021
  65. VELCADE [Suspect]
     Active Substance: BORTEZOMIB
     Dosage: UNK, CYCLE 15
     Route: 065
     Dates: start: 20211124
  66. VELCADE [Suspect]
     Active Substance: BORTEZOMIB
     Dosage: UNK, CYCLE 16
     Route: 065
     Dates: start: 20211222

REACTIONS (6)
  - Fatigue [Unknown]
  - Swelling [Recovering/Resolving]
  - Feeling abnormal [Recovering/Resolving]
  - Breast abscess [Unknown]
  - Limb discomfort [Recovering/Resolving]
  - Back pain [Recovered/Resolved]

NARRATIVE: CASE EVENT DATE: 20200925
